FAERS Safety Report 4900584-0 (Version None)
Quarter: 2006Q1

REPORT INFORMATION
  Report Type: 
  Country: None (occurrence: None)
  Receive Date: 20060106
  Receipt Date: 20050914
  Transmission Date: 20060701
  Serious: No
  Sender: FDA-Public Use
  Company Number: 200511921BWH

PATIENT
  Age: 82 Year
  Sex: Male

DRUGS (5)
  1. LEVITRA [Suspect]
     Indication: ERECTILE DYSFUNCTION
     Dosage: 10 MG, TOTAL DAILY, ORAL
     Route: 048
     Dates: start: 20050801
  2. FOSINOPRIL SODIUM [Concomitant]
  3. METOPROLOL [Concomitant]
  4. VYTORIN [Concomitant]
  5. TERAZOSIN [Concomitant]

REACTIONS (2)
  - ERECTILE DYSFUNCTION [None]
  - RHINORRHOEA [None]
